FAERS Safety Report 6172637-3 (Version None)
Quarter: 2009Q2

REPORT INFORMATION
  Report Type: 
  Country: None (occurrence: None)
  Receive Date: 20090430
  Receipt Date: 20090421
  Transmission Date: 20091009
  Serious: Yes (Other)
  Sender: FDA-Public Use
  Company Number: IN-RANBAXY-2009RR-23514

PATIENT
  Age: 11 Year
  Sex: Male

DRUGS (2)
  1. CEFADROXIL [Suspect]
     Indication: FURUNCLE
  2. CEFADROXIL [Concomitant]
     Indication: SKIN TEST POSITIVE

REACTIONS (1)
  - ACUTE GENERALISED EXANTHEMATOUS PUSTULOSIS [None]
